FAERS Safety Report 20548544 (Version 1)
Quarter: 2022Q1

REPORT INFORMATION
  Report Type: Spontaneous
  Country: JP (occurrence: JP)
  Receive Date: 20220303
  Receipt Date: 20220303
  Transmission Date: 20220423
  Serious: Yes (Death, Congenital Anomaly, Other)
  Sender: FDA-Public Use
  Company Number: JP-TEVA-2022-JP-2011645

PATIENT
  Sex: Female

DRUGS (4)
  1. PREDNISOLONE [Suspect]
     Active Substance: PREDNISOLONE
     Indication: Systemic lupus erythematosus
     Dosage: 5 MILLIGRAM DAILY;
     Route: 064
  2. PREDNISOLONE [Suspect]
     Active Substance: PREDNISOLONE
     Dosage: 15 MILLIGRAM DAILY;
     Route: 064
  3. AZATHIOPRINE [Suspect]
     Active Substance: AZATHIOPRINE
     Indication: Systemic lupus erythematosus
     Dosage: 75 MILLIGRAM DAILY;
     Route: 064
  4. HYDROXYCHLOROQUINE [Suspect]
     Active Substance: HYDROXYCHLOROQUINE
     Indication: Systemic lupus erythematosus
     Dosage: 200 MILLIGRAM DAILY;
     Route: 064

REACTIONS (10)
  - Congenital cytomegalovirus infection [Fatal]
  - Oligohydramnios [Fatal]
  - Cerebellar hypoplasia [Fatal]
  - Cerebral ventricle dilatation [Fatal]
  - Gastrointestinal disorder congenital [Fatal]
  - Ascites [Fatal]
  - Placental calcification [Fatal]
  - Hypertrophy [Fatal]
  - Microcephaly [Fatal]
  - Foetal exposure during pregnancy [Unknown]
